FAERS Safety Report 13632070 (Version 1)
Quarter: 2017Q2

REPORT INFORMATION
  Report Type: Spontaneous
  Country: US (occurrence: US)
  Receive Date: 20170531
  Receipt Date: 20170531
  Transmission Date: 20170830
  Serious: No
  Sender: FDA-Public Use
  Company Number: US-ASTELLAS-1436915

PATIENT
  Sex: Female

DRUGS (1)
  1. TARCEVA [Suspect]
     Active Substance: ERLOTINIB HYDROCHLORIDE
     Indication: LUNG NEOPLASM MALIGNANT
     Route: 048
     Dates: start: 20140626

REACTIONS (10)
  - Onychoclasis [Unknown]
  - Nail disorder [Unknown]
  - Dry skin [Unknown]
  - Eye pain [Unknown]
  - Facial pain [Unknown]
  - Alopecia [Unknown]
  - Nasal mucosal disorder [Unknown]
  - Epistaxis [Unknown]
  - Onychomadesis [Unknown]
  - Nasal discomfort [Unknown]
